FAERS Safety Report 16070806 (Version 1)
Quarter: 2019Q1

REPORT INFORMATION
  Report Type: Spontaneous
  Country: NL (occurrence: NL)
  Receive Date: 20190314
  Receipt Date: 20190314
  Transmission Date: 20190418
  Serious: Yes (Hospitalization)
  Sender: FDA-Public Use
  Company Number: NL-ACCORD-112780

PATIENT
  Sex: Male

DRUGS (1)
  1. ESCITALOPRAM [Suspect]
     Active Substance: ESCITALOPRAM OXALATE
     Indication: PRODUCT USED FOR UNKNOWN INDICATION
     Dosage: 1X DAILY 1 TABLET

REACTIONS (4)
  - Exposure via breast milk [Unknown]
  - Agitation neonatal [Not Recovered/Not Resolved]
  - Maternal exposure during pregnancy [Unknown]
  - Hypertonia neonatal [Not Recovered/Not Resolved]
